FAERS Safety Report 5415372-9 (Version None)
Quarter: 2007Q3

REPORT INFORMATION
  Report Type: 
  Country: None (occurrence: None)
  Receive Date: 20070814
  Receipt Date: 20070814
  Transmission Date: 20080115
  Serious: No
  Sender: FDA-Public Use
  Company Number: None

PATIENT
  Age: 89 Year
  Sex: Female

DRUGS (5)
  1. SULFAMETHOXAZOLE AND TRIMETHOPRIM DS;;; [Suspect]
     Indication: URINARY TRACT INFECTION
     Dosage: 800-160 BID PO
     Route: 048
     Dates: start: 20070401, end: 20070405
  2. MAXZIDE [Concomitant]
  3. HYDRALAZINE HCL [Concomitant]
  4. LISINOPRIL [Concomitant]
  5. LEVOTHYROXINE SODIUM [Concomitant]

REACTIONS (2)
  - HALLUCINATION, AUDITORY [None]
  - SLEEP DISORDER [None]
